FAERS Safety Report 16362802 (Version 1)
Quarter: 2019Q2

REPORT INFORMATION
  Report Type: Spontaneous
  Country: US (occurrence: US)
  Receive Date: 20190422
  Receipt Date: 20190422
  Transmission Date: 20190711
  Serious: No
  Sender: FDA-Public Use
  Company Number: None

PATIENT
  Age: 58 Year
  Sex: Male

DRUGS (1)
  1. OCTREOTIDE VIAL 100MCG/ML [Suspect]
     Active Substance: OCTREOTIDE
     Dosage: STRENGTH 100MCG/ML
     Route: 058
     Dates: start: 20190420

REACTIONS (1)
  - Injection site mass [None]

NARRATIVE: CASE EVENT DATE: 20190422
